FAERS Safety Report 10418812 (Version 1)
Quarter: 2014Q2

REPORT INFORMATION
  Report Type: Spontaneous
  Country: US (occurrence: None)
  Receive Date: 20140625
  Receipt Date: 20140625
  Transmission Date: 20141212
  Serious: No
  Sender: FDA-Public Use
  Company Number: A-US2014-97680

PATIENT
  Age: 54 Year
  Sex: Female

DRUGS (8)
  1. OPSUMIT [Suspect]
     Indication: PULMONARY HYPERTENSION
     Route: 048
     Dates: start: 20140211
  2. ADCIRCA (TADALAFIL) [Concomitant]
  3. LASIX (FUROSEMIDE) [Concomitant]
  4. TRAZODONE [Concomitant]
  5. METOLAZONE [Concomitant]
  6. SPIRONOLACTONE [Concomitant]
  7. POTASSIUM [Concomitant]
  8. ENALAPRIL [Concomitant]

REACTIONS (3)
  - Nasal congestion [None]
  - Cough [None]
  - Photophobia [None]
